FAERS Safety Report 11475900 (Version 2)
Quarter: 2015Q4

REPORT INFORMATION
  Report Type: Spontaneous
  Country: GB (occurrence: GB)
  Receive Date: 20150909
  Receipt Date: 20151009
  Transmission Date: 20160304
  Serious: Yes (Hospitalization)
  Sender: FDA-Public Use
  Company Number: GB-TEVA-590640ACC

PATIENT
  Age: 22 Year
  Sex: Female

DRUGS (21)
  1. PAROXETIN [Suspect]
     Active Substance: PAROXETINE HYDROCHLORIDE
  2. MONTELUKAST [Suspect]
     Active Substance: MONTELUKAST SODIUM
  3. FERROUS FUMARATE [Suspect]
     Active Substance: FERROUS FUMARATE
  4. PRIADEL [Suspect]
     Active Substance: LITHIUM CARBONATE
  5. LANSOPRAZOLE. [Suspect]
     Active Substance: LANSOPRAZOLE
  6. PAROXETIN [Concomitant]
     Active Substance: PAROXETINE HYDROCHLORIDE
     Dosage: 50 MILLIGRAM DAILY; 50 MG IN THE MORNING
  7. ZAPONEX [Suspect]
     Active Substance: CLOZAPINE
     Route: 048
     Dates: start: 20150727, end: 201509
  8. FOSTAIR [Concomitant]
     Active Substance: BECLOMETHASONE\FORMOTEROL
     Dosage: 4 DOSAGE FORMS DAILY; 100/6 PRESSURISED INHALATION, SOLUTION
     Route: 055
  9. FLUCONAZOLE. [Concomitant]
     Active Substance: FLUCONAZOLE
     Dosage: PRESSURISED INHALATION
  10. FERROUS FUMARATE [Concomitant]
     Active Substance: FERROUS FUMARATE
     Dosage: 420 MILLIGRAM DAILY;
  11. FOLIC ACID. [Concomitant]
     Active Substance: FOLIC ACID
     Dosage: 5 MILLIGRAM DAILY; 5 MG IN THE MORNING
  12. LANSOPRAZOLE. [Concomitant]
     Active Substance: LANSOPRAZOLE
     Dosage: 60 MILLIGRAM DAILY; 30 MG TWICE DAILY
  13. FOLIC ACID. [Suspect]
     Active Substance: FOLIC ACID
  14. HYOSCINE HYDROBROMIDE [Suspect]
     Active Substance: SCOPOLAMINE
  15. FLUCONAZOLE. [Suspect]
     Active Substance: FLUCONAZOLE
  16. ZAPONEX [Suspect]
     Active Substance: CLOZAPINE
     Dosage: 50MG IN THE MORNING, 150MG IN THE EVENING, 175MG AT NIGHT
     Route: 048
     Dates: start: 20131024, end: 20150722
  17. HYOSCINE HYDROBROMIDE [Concomitant]
     Active Substance: SCOPOLAMINE
     Dosage: 450 MICROGRAM DAILY; 450 MCG AT NIGHT
  18. ZAPONEX [Suspect]
     Active Substance: CLOZAPINE
     Route: 048
     Dates: start: 20150723, end: 20150723
  19. MONTELUKAST [Concomitant]
     Active Substance: MONTELUKAST SODIUM
     Dosage: 10 MILLIGRAM DAILY; 10 MG AT NIGHT
  20. PRIADEL [Concomitant]
     Active Substance: LITHIUM CARBONATE
     Dosage: 1000 MILLIGRAM DAILY; 1000 MG AT NIGHT
     Dates: end: 20150722
  21. PRIADEL [Concomitant]
     Active Substance: LITHIUM CARBONATE
     Dates: start: 20150727

REACTIONS (3)
  - Intentional overdose [Recovered/Resolved]
  - Fatigue [Unknown]
  - Overdose [Recovered/Resolved]

NARRATIVE: CASE EVENT DATE: 20150723
